FAERS Safety Report 23524675 (Version 1)
Quarter: 2024Q1

REPORT INFORMATION
  Report Type: Spontaneous
  Country: US (occurrence: US)
  Receive Date: 20240215
  Receipt Date: 20240215
  Transmission Date: 20240410
  Serious: Yes (Other)
  Sender: FDA-Public Use
  Company Number: US-Blueprint Medicines Corporation-2283

PATIENT
  Sex: Female

DRUGS (2)
  1. AYVAKIT [Suspect]
     Active Substance: AVAPRITINIB
     Indication: Systemic mastocytosis
     Route: 048
     Dates: start: 20230725
  2. AYVAKIT [Suspect]
     Active Substance: AVAPRITINIB
     Indication: Indolent systemic mastocytosis

REACTIONS (5)
  - Neuropathy peripheral [Recovered/Resolved]
  - Hypoaesthesia [Recovered/Resolved]
  - Burning sensation [Recovered/Resolved]
  - Taste disorder [Recovered/Resolved]
  - Weight decreased [Recovered/Resolved]
